FAERS Safety Report 10176292 (Version 1)
Quarter: 2014Q2

REPORT INFORMATION
  Report Type: Spontaneous
  Country: US (occurrence: None)
  Receive Date: 20140514
  Receipt Date: 20140514
  Transmission Date: 20141212
  Serious: Yes (Other)
  Sender: FDA-Public Use
  Company Number: C14 019 AE

PATIENT
  Age: 56 Year
  Sex: Male

DRUGS (1)
  1. FIRST - DUKE^S MOUTHWASH [Suspect]
     Indication: STOMATITIS
     Dosage: 10 ML Q4H PRN ORALLY
     Route: 048
     Dates: start: 20140424, end: 20140429

REACTIONS (1)
  - Oral discomfort [None]
